FAERS Safety Report 14069834 (Version 1)
Quarter: 2017Q4

REPORT INFORMATION
  Report Type: Report from Study
  Country: FR (occurrence: FR)
  Receive Date: 20171010
  Receipt Date: 20171010
  Transmission Date: 20180321
  Serious: Yes (Hospitalization, Other)
  Sender: FDA-Public Use
  Company Number: PHHY2017FR144094

PATIENT
  Age: 71 Year
  Sex: Female

DRUGS (11)
  1. RANITIDINE. [Concomitant]
     Active Substance: RANITIDINE
     Indication: GASTROOESOPHAGEAL REFLUX DISEASE
     Dosage: UNK
     Route: 065
     Dates: start: 20140303
  2. LEVOTHYROXINE SODIUM. [Concomitant]
     Active Substance: LEVOTHYROXINE SODIUM
     Indication: HYPOTHYROIDISM
     Dosage: UNK
     Route: 065
     Dates: start: 200507
  3. KETOPROFEN. [Concomitant]
     Active Substance: KETOPROFEN
     Indication: ARTHRALGIA
     Dosage: UNK
     Route: 065
     Dates: start: 20170801
  4. PALBOCICLIB [Suspect]
     Active Substance: PALBOCICLIB
     Indication: BREAST CANCER
     Dosage: 125 MG, UNK
     Route: 048
     Dates: start: 20140106, end: 20170814
  5. DOSULEPIN HYDROCHLORIDE [Concomitant]
     Active Substance: DOTHIEPIN HYDROCHLORIDE
     Indication: DEPRESSION
     Dosage: UNK
     Route: 065
     Dates: start: 2004
  6. PARACETAMOL CODEINE [Concomitant]
     Active Substance: ACETAMINOPHEN\CODEINE PHOSPHATE
     Indication: ARTHRALGIA
     Dosage: UNK
     Route: 065
     Dates: start: 20170919
  7. DAFALGAN CODEINE [Concomitant]
     Active Substance: ACETAMINOPHEN\CODEINE PHOSPHATE
     Indication: ARTHRALGIA
     Dosage: UNK
     Route: 065
     Dates: start: 2013
  8. ROSUVASTATIN. [Concomitant]
     Active Substance: ROSUVASTATIN
     Indication: HYPERCHOLESTEROLAEMIA
     Dosage: UNK
     Route: 065
     Dates: start: 20170803
  9. DAFALGAN [Concomitant]
     Active Substance: ACETAMINOPHEN
     Indication: ARTHRALGIA
     Dosage: UNK
     Route: 065
     Dates: start: 2013
  10. LORAZEPAM. [Concomitant]
     Active Substance: LORAZEPAM
     Indication: ANXIETY
     Dosage: UNK
     Route: 065
     Dates: start: 2004
  11. LETROZOLE. [Suspect]
     Active Substance: LETROZOLE
     Indication: BREAST CANCER
     Dosage: 2.5 MG, QD
     Route: 048
     Dates: start: 20140106, end: 20170821

REACTIONS (21)
  - Cardiomegaly [Unknown]
  - Myalgia [Not Recovered/Not Resolved]
  - Interstitial lung disease [Not Recovered/Not Resolved]
  - Cardiac valve disease [Unknown]
  - Cardiac failure [Recovered/Resolved]
  - Arrhythmia [Recovered/Resolved]
  - Dyspnoea [Recovered/Resolved]
  - Dry skin [Not Recovered/Not Resolved]
  - Aortic valve incompetence [Unknown]
  - Dyspnoea [Not Recovered/Not Resolved]
  - Cognitive disorder [Not Recovered/Not Resolved]
  - Nail toxicity [Not Recovered/Not Resolved]
  - Dyspnoea [Recovered/Resolved]
  - Alopecia [Not Recovered/Not Resolved]
  - PO2 decreased [Unknown]
  - Dyspnoea [Recovered/Resolved]
  - Asthenia [Not Recovered/Not Resolved]
  - Dyspnoea [Recovered/Resolved]
  - Left ventricular failure [Recovered/Resolved]
  - Mucosal inflammation [Not Recovered/Not Resolved]
  - Brain natriuretic peptide increased [Unknown]

NARRATIVE: CASE EVENT DATE: 20140529
